FAERS Safety Report 8849223 (Version 1)
Quarter: 2012Q4

REPORT INFORMATION
  Report Type: 
  Country: BE (occurrence: BE)
  Receive Date: 20121019
  Receipt Date: 20121019
  Transmission Date: 20130627
  Serious: Yes (Life-Threatening, Hospitalization, Disabling, Other)
  Sender: FDA-Public Use
  Company Number: BE-JNJFOC-20121006795

PATIENT

DRUGS (1)
  1. INFLIXIMAB, RECOMBINANT [Suspect]
     Indication: COLITIS ULCERATIVE
     Dosage: dose of 5 or 10 mg/kg; induction weeks 0, 2 and 6
     Route: 042

REACTIONS (6)
  - Infusion related reaction [Unknown]
  - Infusion related reaction [Unknown]
  - Type IV hypersensitivity reaction [Unknown]
  - Adverse event [Unknown]
  - Inflammation [Unknown]
  - Neoplasm malignant [Unknown]
